FAERS Safety Report 9528689 (Version 1)
Quarter: 2013Q3

REPORT INFORMATION
  Report Type: Spontaneous
  Country: US (occurrence: US)
  Receive Date: 20130917
  Receipt Date: 20130917
  Transmission Date: 20140515
  Serious: No
  Sender: FDA-Public Use
  Company Number: US-BAYER-2013-111586

PATIENT
  Age: 77 Year
  Sex: Female
  Weight: 54 kg

DRUGS (4)
  1. ALEVE CAPLET [Suspect]
     Indication: ARTHRITIS
     Dosage: 1 DF, BID
     Route: 048
     Dates: start: 20121118
  2. KRILL OIL [Concomitant]
  3. GLUCOSAMINE [Concomitant]
  4. CALCIUM +VIT D [Concomitant]

REACTIONS (2)
  - Incorrect drug administration duration [None]
  - Incorrect dose administered [None]
